FAERS Safety Report 5933324-7 (Version None)
Quarter: 2008Q4

REPORT INFORMATION
  Report Type: 
  Country: None (occurrence: None)
  Receive Date: 20081028
  Receipt Date: 20081017
  Transmission Date: 20090506
  Serious: Yes (Other)
  Sender: FDA-Public Use
  Company Number: DE-PFIZER INC-2008088109

PATIENT
  Sex: Female

DRUGS (2)
  1. LYRICA [Suspect]
     Route: 048
  2. ANALGESICS [Concomitant]

REACTIONS (2)
  - LOSS OF CONSCIOUSNESS [None]
  - PETIT MAL EPILEPSY [None]
